FAERS Safety Report 8789486 (Version 1)
Quarter: 2012Q4

REPORT INFORMATION
  Report Type: Spontaneous
  Country: US (occurrence: None)
  Receive Date: 20120906
  Receipt Date: 20120906
  Transmission Date: 20130627
  Serious: Yes (Hospitalization)
  Sender: FDA-Public Use
  Company Number: 1389215

PATIENT
  Sex: Male

DRUGS (4)
  1. LIDOCAINE HCL WITH EPINEPHRINE [Suspect]
     Indication: NECK LIFT
     Dates: start: 20120809
  2. LIDOCAINE HCL WITH EPINEPHRINE [Suspect]
     Indication: FACE LIFT
     Dates: start: 20120809
  3. LIDOCAINE HCL WITH EPINEPHRINE [Suspect]
     Indication: NECK LIFT
     Dates: start: 20120809
  4. LIDOCAINE HCL WITH EPINEPHRINE [Suspect]
     Indication: FACE LIFT
     Dates: start: 20120809

REACTIONS (1)
  - Haemorrhage [None]
